FAERS Safety Report 22110036 (Version 2)
Quarter: 2023Q2

REPORT INFORMATION
  Report Type: Spontaneous
  Country: ZA (occurrence: ZA)
  Receive Date: 20230317
  Receipt Date: 20230531
  Transmission Date: 20230721
  Serious: Yes (Other)
  Sender: FDA-Public Use
  Company Number: ZA-PFIZER INC-PV202300048985

PATIENT
  Age: 79 Year
  Sex: Female
  Weight: 58 kg

DRUGS (8)
  1. METHOTREXATE SODIUM [Suspect]
     Active Substance: METHOTREXATE SODIUM
     Indication: Ankylosing spondylitis
     Dosage: 20 MG, WEEKLY
     Dates: start: 200808
  2. METHOTREXATE SODIUM [Suspect]
     Active Substance: METHOTREXATE SODIUM
     Indication: Spondyloarthropathy
  3. SULFASALAZINE [Suspect]
     Active Substance: SULFASALAZINE
     Indication: Ankylosing spondylitis
     Dosage: 1 G, 3X/DAY
     Dates: start: 200808
  4. SULFASALAZINE [Suspect]
     Active Substance: SULFASALAZINE
     Indication: Spondyloarthropathy
  5. PREDNISONE [Suspect]
     Active Substance: PREDNISONE
     Indication: Ankylosing spondylitis
     Dosage: 7.5 MG, DAILY
     Dates: start: 200808
  6. PREDNISONE [Suspect]
     Active Substance: PREDNISONE
     Indication: Spondyloarthropathy
  7. ARCOXIA [Concomitant]
     Active Substance: ETORICOXIB
     Dosage: UNK
  8. CELEBREX [Concomitant]
     Active Substance: CELECOXIB
     Dosage: UNK
     Dates: start: 202112

REACTIONS (6)
  - Urticaria [Unknown]
  - Vasculitic rash [Unknown]
  - Pruritus [Unknown]
  - Treatment failure [Unknown]
  - White blood cell count increased [Unknown]
  - Blood pressure increased [Unknown]
